FAERS Safety Report 8434160-2 (Version None)
Quarter: 2012Q2

REPORT INFORMATION
  Report Type: 
  Country: None (occurrence: None)
  Receive Date: 20120613
  Receipt Date: 20120607
  Transmission Date: 20120825
  Serious: Yes (Hospitalization)
  Sender: FDA-Public Use
  Company Number: US-ACTELION-A-NJ2012-66599

PATIENT

DRUGS (6)
  1. VENTAVIS [Suspect]
     Indication: PULMONARY ARTERIAL HYPERTENSION
     Dosage: UNK
     Route: 055
     Dates: start: 20100113
  2. RITUXAN [Concomitant]
  3. TRACLEER [Suspect]
     Indication: PULMONARY ARTERIAL HYPERTENSION
     Dosage: UNK
     Route: 048
     Dates: start: 20111130
  4. DIGOXIN [Concomitant]
  5. LASIX [Concomitant]
  6. SILDENAFIL [Concomitant]

REACTIONS (6)
  - DYSPHAGIA [None]
  - DYSPEPSIA [None]
  - DIZZINESS [None]
  - VOMITING [None]
  - DRUG DOSE OMISSION [None]
  - WEIGHT DECREASED [None]
